FAERS Safety Report 5094251-3 (Version None)
Quarter: 2006Q3

REPORT INFORMATION
  Report Type: 
  Country: None (occurrence: None)
  Receive Date: 20060831
  Receipt Date: 20060830
  Transmission Date: 20061208
  Serious: Yes (Disabling)
  Sender: FDA-Public Use
  Company Number: US-GLAXOSMITHKLINE-A0618640A

PATIENT
  Sex: Male

DRUGS (2)
  1. COREG [Suspect]
     Indication: HYPERTENSION
     Route: 048
     Dates: start: 20060807
  2. ALTACE [Concomitant]

REACTIONS (1)
  - SEXUAL DYSFUNCTION [None]
